FAERS Safety Report 4990049-2 (Version None)
Quarter: 2006Q2

REPORT INFORMATION
  Report Type: 
  Country: None (occurrence: None)
  Receive Date: 20060427
  Receipt Date: 20060421
  Transmission Date: 20061013
  Serious: Yes (Death)
  Sender: FDA-Public Use
  Company Number: J081-002-002206

PATIENT
  Age: 89 Year
  Sex: Male

DRUGS (10)
  1. ARICEPT [Suspect]
     Indication: CEREBROVASCULAR DISORDER
     Dosage: 3 MG, 1 IN 1 D, ORAL; 5 MG, 1 IN 1 D, ORAL
     Route: 048
     Dates: start: 20060118, end: 20060125
  2. ARICEPT [Suspect]
     Indication: DEMENTIA
     Dosage: 3 MG, 1 IN 1 D, ORAL; 5 MG, 1 IN 1 D, ORAL
     Route: 048
     Dates: start: 20060118, end: 20060125
  3. ARICEPT [Suspect]
     Indication: CEREBROVASCULAR DISORDER
     Dosage: 3 MG, 1 IN 1 D, ORAL; 5 MG, 1 IN 1 D, ORAL
     Route: 048
     Dates: start: 20060126, end: 20060302
  4. ARICEPT [Suspect]
     Indication: DEMENTIA
     Dosage: 3 MG, 1 IN 1 D, ORAL; 5 MG, 1 IN 1 D, ORAL
     Route: 048
     Dates: start: 20060126, end: 20060302
  5. PHENYTOIN [Concomitant]
  6. PHENORABRITAL (PHENOBARBITAL) [Concomitant]
  7. SYMMETREL [Concomitant]
  8. SEPAMIT-R (NIFEDIPINE) [Concomitant]
  9. DIOVAN [Concomitant]
  10. GABALON (BACLOFEN) [Concomitant]

REACTIONS (3)
  - PNEUMONIA [None]
  - SUDDEN DEATH [None]
  - TREMOR [None]
